FAERS Safety Report 20868224 (Version 2)
Quarter: 2022Q3

REPORT INFORMATION
  Report Type: Spontaneous
  Country: AU (occurrence: AU)
  Receive Date: 20220524
  Receipt Date: 20220706
  Transmission Date: 20221027
  Serious: Yes (Other)
  Sender: FDA-Public Use
  Company Number: AU-PFIZER INC-202200729121

PATIENT
  Age: 42 Year

DRUGS (6)
  1. AMIKACIN SULFATE [Suspect]
     Active Substance: AMIKACIN SULFATE
     Dosage: 800 MG
     Route: 042
     Dates: start: 20020627, end: 20020708
  2. MEROPENEM [Suspect]
     Active Substance: MEROPENEM
     Indication: Pneumonia
     Dosage: 3 G
     Route: 042
     Dates: start: 20020625, end: 20020708
  3. COLISTIN SULFATE [Suspect]
     Active Substance: COLISTIN SULFATE
     Dosage: 600 MG
     Route: 042
     Dates: start: 20020628, end: 20020701
  4. ATROVENT [Concomitant]
     Active Substance: IPRATROPIUM BROMIDE
     Dosage: 3 MG
     Route: 055
     Dates: start: 20020626
  5. ALBUTEROL SULFATE [Concomitant]
     Active Substance: ALBUTEROL SULFATE
     Dosage: 60 MG
     Route: 055
     Dates: start: 20020626
  6. ZANTAC [Concomitant]
     Active Substance: RANITIDINE HYDROCHLORIDE
     Dosage: 150 MG
     Route: 048
     Dates: start: 20020625

REACTIONS (1)
  - Acute kidney injury [Not Recovered/Not Resolved]

NARRATIVE: CASE EVENT DATE: 20020701
